FAERS Safety Report 12127888 (Version 1)
Quarter: 2016Q1

REPORT INFORMATION
  Report Type: Spontaneous
  Country: CH (occurrence: AU)
  Receive Date: 20160229
  Receipt Date: 20160229
  Transmission Date: 20160526
  Serious: Yes (Hospitalization)
  Sender: FDA-Public Use
  Company Number: CH-LPDUSPRD-20160170

PATIENT
  Age: 76 Year
  Sex: Female

DRUGS (1)
  1. FERINJECT [Suspect]
     Active Substance: FERRIC CARBOXYMALTOSE
     Dosage: 1000 MG (1 IN 1 TOTAL)
     Route: 042
     Dates: start: 20151125

REACTIONS (3)
  - Dyspnoea [Unknown]
  - Asthenia [Unknown]
  - Swelling face [Unknown]

NARRATIVE: CASE EVENT DATE: 20151125
